FAERS Safety Report 4995493-5 (Version None)
Quarter: 2006Q2

REPORT INFORMATION
  Report Type: 
  Country: None (occurrence: None)
  Receive Date: 20060504
  Receipt Date: 20060421
  Transmission Date: 20061013
  Serious: Yes (Hospitalization)
  Sender: FDA-Public Use
  Company Number: 200612313BWH

PATIENT
  Sex: Male

DRUGS (2)
  1. SORAFENIB [Suspect]
     Indication: SMALL INTESTINE CARCINOMA
     Dosage: SEE IMAGE
     Route: 048
     Dates: start: 20060215, end: 20060301
  2. SORAFENIB [Suspect]
     Indication: SMALL INTESTINE CARCINOMA
     Dosage: SEE IMAGE
     Route: 048
     Dates: start: 20060301

REACTIONS (3)
  - DRUG DOSE OMISSION [None]
  - HYPOTRICHOSIS [None]
  - THROMBOSIS [None]
